FAERS Safety Report 23850059 (Version 1)
Quarter: 2024Q2

REPORT INFORMATION
  Report Type: Spontaneous
  Country: US (occurrence: US)
  Receive Date: 20240513
  Receipt Date: 20240513
  Transmission Date: 20240716
  Serious: No
  Sender: FDA-Public Use
  Company Number: US-Prasco Laboratories-PRAS20240905

PATIENT
  Sex: Male

DRUGS (1)
  1. PROCENTRA [Suspect]
     Active Substance: DEXTROAMPHETAMINE SULFATE
     Indication: Attention deficit hyperactivity disorder
     Dosage: 10 MG, UNKNOWN
     Route: 048
     Dates: start: 202405

REACTIONS (3)
  - Abdominal pain upper [Recovering/Resolving]
  - Heart rate increased [Recovered/Resolved]
  - Diarrhoea [Recovering/Resolving]

NARRATIVE: CASE EVENT DATE: 20240501
